FAERS Safety Report 4880144-0 (Version None)
Quarter: 2006Q1

REPORT INFORMATION
  Report Type: 
  Country: None (occurrence: None)
  Receive Date: 20060111
  Receipt Date: 20051230
  Transmission Date: 20060701
  Serious: Yes (Other)
  Sender: FDA-Public Use
  Company Number: 2006001732

PATIENT
  Sex: Male

DRUGS (2)
  1. BEXTRA [Suspect]
     Indication: JOINT INJURY
     Dosage: (10 MG, INTERVAL:  EVERY DAY)
     Dates: start: 20050706, end: 20050711
  2. CELEBREX [Suspect]
     Indication: JOINT INJURY
     Dosage: (INTERVAL:  EVERY DAY)
     Dates: end: 20050711

REACTIONS (10)
  - ABNORMAL SENSATION IN EYE [None]
  - DEPRESSION [None]
  - DERMATITIS CONTACT [None]
  - DYSPEPSIA [None]
  - GASTROOESOPHAGEAL REFLUX DISEASE [None]
  - HEADACHE [None]
  - INSOMNIA [None]
  - PRURITUS [None]
  - RASH PUSTULAR [None]
  - SINUSITIS [None]
